FAERS Safety Report 24332758 (Version 1)
Quarter: 2024Q3

REPORT INFORMATION
  Report Type: Spontaneous
  Country: CN (occurrence: CN)
  Receive Date: 20240918
  Receipt Date: 20240918
  Transmission Date: 20241017
  Serious: Yes (Other)
  Sender: PFIZER
  Company Number: CN-PFIZER INC-PV202400120786

PATIENT
  Age: 49 Year
  Sex: Female

DRUGS (3)
  1. PACLITAXEL [Suspect]
     Active Substance: PACLITAXEL
     Indication: Ovarian neoplasm
     Dosage: 30 MG, 1X/DAY
     Route: 041
     Dates: start: 20240821, end: 20240821
  2. PACLITAXEL [Suspect]
     Active Substance: PACLITAXEL
     Dosage: 210 MG, 1X/DAY
     Route: 041
     Dates: start: 20240821, end: 20240821
  3. CARBOPLATIN [Suspect]
     Active Substance: CARBOPLATIN
     Indication: Neoplasm
     Dosage: 500 MG, 1X/DAY
     Route: 041
     Dates: start: 20240821, end: 20240821

REACTIONS (1)
  - Drug-induced liver injury [Recovered/Resolved]

NARRATIVE: CASE EVENT DATE: 20240822
